FAERS Safety Report 25064976 (Version 1)
Quarter: 2025Q1

REPORT INFORMATION
  Report Type: Spontaneous
  Country: US (occurrence: US)
  Receive Date: 20250311
  Receipt Date: 20250311
  Transmission Date: 20250409
  Serious: No
  Sender: Haleon PLC
  Company Number: US-HALEON-2232374

PATIENT

DRUGS (1)
  1. SENSODYNE [Suspect]
     Active Substance: POTASSIUM NITRATE\SODIUM FLUORIDE
     Indication: Hyperaesthesia teeth

REACTIONS (4)
  - Oral mucosal exfoliation [Unknown]
  - Oral pain [Unknown]
  - Lip exfoliation [Unknown]
  - Tongue exfoliation [Unknown]
